FAERS Safety Report 9242153 (Version 1)
Quarter: 2013Q2

REPORT INFORMATION
  Report Type: Spontaneous
  Country: US (occurrence: US)
  Receive Date: 20130419
  Receipt Date: 20130419
  Transmission Date: 20140414
  Serious: No
  Sender: FDA-Public Use
  Company Number: US-PFIZER INC-2013119938

PATIENT
  Age: 80 Year
  Sex: Female
  Weight: 45.35 kg

DRUGS (2)
  1. LEVOXYL [Suspect]
     Indication: THYROID HORMONE REPLACEMENT THERAPY
     Dosage: 75 UG, 1X/DAY
     Route: 048
     Dates: end: 2013
  2. PREDNISONE [Concomitant]
     Dosage: UNK

REACTIONS (12)
  - Vertigo [Unknown]
  - Malaise [Unknown]
  - Pyrexia [Unknown]
  - Headache [Recovering/Resolving]
  - Dizziness [Recovering/Resolving]
  - Paraesthesia [Recovering/Resolving]
  - Hypoaesthesia [Recovering/Resolving]
  - Skin odour abnormal [Recovering/Resolving]
  - Drug intolerance [Unknown]
  - Thyroid function test abnormal [Unknown]
  - Nervousness [Recovering/Resolving]
  - Psychomotor hyperactivity [Recovering/Resolving]
